FAERS Safety Report 16454739 (Version 3)
Quarter: 2019Q4

REPORT INFORMATION
  Report Type: Spontaneous
  Country: US (occurrence: US)
  Receive Date: 20190619
  Receipt Date: 20191023
  Transmission Date: 20200122
  Serious: Yes (Hospitalization)
  Sender: FDA-Public Use
  Company Number: US-PFIZER INC-2019258570

PATIENT
  Age: 59 Year
  Sex: Female
  Weight: 40.82 kg

DRUGS (13)
  1. VORICONAZOLE. [Suspect]
     Active Substance: VORICONAZOLE
     Dosage: UNK
  2. VORICONAZOLE. [Suspect]
     Active Substance: VORICONAZOLE
     Indication: CORNEAL TRANSPLANT
     Dosage: 10 MG, 3X/DAY
     Dates: start: 201707
  3. VORICONAZOLE. [Suspect]
     Active Substance: VORICONAZOLE
     Indication: EYE INFECTION
     Dosage: 10MG/ML VORICONAZOLE/1% SALINE-1 DROP INTO EYE TWICE DAILY
     Dates: start: 201707
  4. VORICONAZOLE. [Suspect]
     Active Substance: VORICONAZOLE
     Dosage: UNK
  5. SALINE [SODIUM CHLORIDE] [Suspect]
     Active Substance: SODIUM CHLORIDE
     Dosage: UNK, 3X/DAY
     Dates: start: 201707
  6. COMBIGAN [Concomitant]
     Active Substance: BRIMONIDINE TARTRATE\TIMOLOL MALEATE
     Dosage: 5 ML, UNK
     Dates: start: 201907
  7. VORICONAZOLE. [Suspect]
     Active Substance: VORICONAZOLE
     Dosage: UNK
  8. SALINE [SODIUM CHLORIDE] [Suspect]
     Active Substance: SODIUM CHLORIDE
     Indication: EYE INFECTION
     Dosage: 10MG/ML VORICONAZOLE/1% SALINE-1 DROP INTO EYE TWICE DAILY
  9. LOTEPREDNOL ETABONATE [Concomitant]
     Active Substance: LOTEPREDNOL ETABONATE
     Dosage: 5 ML, UNK
     Route: 047
     Dates: start: 20191009
  10. POLYHEXAMETHYLENE BIGUANIDE HYDROCHLORIDE [Concomitant]
     Active Substance: POLIHEXANIDE HYDROCHLORIDE
     Dosage: UNK
     Dates: start: 201707, end: 20190805
  11. VORICONAZOLE. [Suspect]
     Active Substance: VORICONAZOLE
     Dosage: 10 MG, 2X/DAY
     Dates: end: 201906
  12. VORICONAZOLE. [Suspect]
     Active Substance: VORICONAZOLE
     Dosage: UNK
  13. NATACYN [Concomitant]
     Active Substance: NATAMYCIN
     Dosage: 15 ML, UNK
     Dates: start: 201907

REACTIONS (7)
  - Product use issue [Unknown]
  - Weight decreased [Not Recovered/Not Resolved]
  - Visual impairment [Not Recovered/Not Resolved]
  - Depression [Not Recovered/Not Resolved]
  - Memory impairment [Not Recovered/Not Resolved]
  - Anxiety [Not Recovered/Not Resolved]
  - Off label use [Unknown]

NARRATIVE: CASE EVENT DATE: 201707
